FAERS Safety Report 11533088 (Version 1)
Quarter: 2015Q3

REPORT INFORMATION
  Report Type: Spontaneous
  Country: US (occurrence: US)
  Receive Date: 20150921
  Receipt Date: 20150921
  Transmission Date: 20151125
  Serious: No
  Sender: FDA-Public Use
  Company Number: US-ASTRAZENECA-2015SE87769

PATIENT
  Age: 60 Year
  Sex: Female

DRUGS (2)
  1. METFORMIN [Concomitant]
     Active Substance: METFORMIN HYDROCHLORIDE
  2. XIGDUO XR [Suspect]
     Active Substance: DAPAGLIFLOZIN PROPANEDIOL\METFORMIN HYDROCHLORIDE
     Dosage: 10 MG/500 MG 30 COUNT BOTTLE
     Route: 048

REACTIONS (4)
  - Dysuria [Unknown]
  - Nausea [Unknown]
  - Urine ketone body present [Unknown]
  - Fatigue [Unknown]

NARRATIVE: CASE EVENT DATE: 2015
